FAERS Safety Report 22834974 (Version 7)
Quarter: 2025Q3

REPORT INFORMATION
  Report Type: Spontaneous
  Country: US (occurrence: US)
  Receive Date: 20230818
  Receipt Date: 20250825
  Transmission Date: 20251021
  Serious: Yes (Hospitalization, Other)
  Sender: SANOFI AVENTIS
  Company Number: US-SA-SAC20230816000673

PATIENT
  Age: 54 Year
  Sex: Male

DRUGS (14)
  1. DUPIXENT [Suspect]
     Active Substance: DUPILUMAB
     Indication: Asthma
     Dosage: 300 MG, QOW
     Route: 058
     Dates: start: 2022
  2. MONTELUKAST [Concomitant]
     Active Substance: MONTELUKAST
  3. CELEBREX [Concomitant]
     Active Substance: CELECOXIB
  4. CELEBREX [Concomitant]
     Active Substance: CELECOXIB
  5. ZUBSOLV [Concomitant]
     Active Substance: BUPRENORPHINE HYDROCHLORIDE\NALOXONE HYDROCHLORIDE
  6. ZUBSOLV [Concomitant]
     Active Substance: BUPRENORPHINE HYDROCHLORIDE\NALOXONE HYDROCHLORIDE
  7. ALBUTEROL SULFATE [Concomitant]
     Active Substance: ALBUTEROL SULFATE
  8. ATENOLOL [Concomitant]
     Active Substance: ATENOLOL
  9. BUSPIRONE HCL [Concomitant]
     Active Substance: BUSPIRONE HYDROCHLORIDE
  10. GABAPENTIN [Concomitant]
     Active Substance: GABAPENTIN
  11. TAMSULOSIN HYDROCHLORIDE [Concomitant]
     Active Substance: TAMSULOSIN HYDROCHLORIDE
  12. TIZANIDINE HYDROCHLORIDE [Concomitant]
     Active Substance: TIZANIDINE HYDROCHLORIDE
  13. STIOLTO RESPIMAT [Concomitant]
     Active Substance: OLODATEROL HYDROCHLORIDE\TIOTROPIUM BROMIDE MONOHYDRATE
  14. JARDIANCE [Concomitant]
     Active Substance: EMPAGLIFLOZIN

REACTIONS (12)
  - Pneumonia [Unknown]
  - Asthma [Unknown]
  - Nasal congestion [Unknown]
  - Pulmonary congestion [Unknown]
  - Dyspnoea [Unknown]
  - Respiratory tract irritation [Unknown]
  - Joint injury [Unknown]
  - Oropharyngeal discomfort [Unknown]
  - Intervertebral disc protrusion [Unknown]
  - Fungal skin infection [Unknown]
  - Upper respiratory tract infection [Unknown]
  - Sinusitis [Unknown]

NARRATIVE: CASE EVENT DATE: 20230101
